FAERS Safety Report 19220050 (Version 4)
Quarter: 2021Q3

REPORT INFORMATION
  Report Type: Spontaneous
  Country: US (occurrence: US)
  Receive Date: 20210505
  Receipt Date: 20210907
  Transmission Date: 20211014
  Serious: No
  Sender: FDA-Public Use
  Company Number: US-BIOGEN-2021BI00966646

PATIENT
  Age: 61 Year
  Sex: Female

DRUGS (1)
  1. VUMERITY [Suspect]
     Active Substance: DIROXIMEL FUMARATE
     Indication: MULTIPLE SCLEROSIS
     Route: 048
     Dates: start: 20210106, end: 20210125

REACTIONS (8)
  - Drug ineffective [Unknown]
  - Band sensation [Unknown]
  - Pruritus [Recovered/Resolved]
  - Urticaria [Recovered/Resolved]
  - Flushing [Unknown]
  - Multiple sclerosis relapse [Unknown]
  - Nervousness [Not Recovered/Not Resolved]
  - Rash maculo-papular [Not Recovered/Not Resolved]

NARRATIVE: CASE EVENT DATE: 202101
